FAERS Safety Report 8735984 (Version 2)
Quarter: 2013Q4

REPORT INFORMATION
  Report Type: Report from Study
  Country: US (occurrence: US)
  Receive Date: 20120822
  Receipt Date: 20131105
  Transmission Date: 20140711
  Serious: Yes (Other)
  Sender: FDA-Public Use
  Company Number: US-009507513-1208USA007176

PATIENT
  Age: 49 Year
  Sex: Female

DRUGS (8)
  1. VICTRELIS [Suspect]
     Indication: CHRONIC HEPATITIS C
     Dosage: 4 DF, TID
     Route: 048
     Dates: start: 20110910
  2. COPEGUS [Suspect]
     Indication: CHRONIC HEPATITIS C
     Dosage: 1000 MG DEVIDED DOSES
     Dates: start: 20110820
  3. COPEGUS [Suspect]
     Dosage: 1200 MG DEVIDED DOSES
  4. COPEGUS [Suspect]
     Dosage: 800 MG DEVIDED DOSES
  5. PEGINTERFERON ALFA-2A [Suspect]
     Indication: CHRONIC HEPATITIS C
     Dosage: 180 MICROGRAM, QW
     Dates: start: 20110820
  6. ZOLOFT [Concomitant]
  7. NEURONTIN [Concomitant]
  8. MAGNESIUM HYDROXIDE [Concomitant]

REACTIONS (5)
  - Weight increased [Unknown]
  - Joint swelling [Unknown]
  - Swelling face [Unknown]
  - Abdominal distension [Unknown]
  - Influenza [Unknown]
